FAERS Safety Report 19583305 (Version 2)
Quarter: 2021Q3

REPORT INFORMATION
  Report Type: Spontaneous
  Country: FR (occurrence: FR)
  Receive Date: 20210720
  Receipt Date: 20210826
  Transmission Date: 20211014
  Serious: Yes (Hospitalization)
  Sender: FDA-Public Use
  Company Number: FR-MYLANLABS-2021M1042291

PATIENT
  Age: 60 Year
  Sex: Male
  Weight: 72 kg

DRUGS (3)
  1. PYOSTACINE [Suspect]
     Active Substance: PRISTINAMYCIN
     Indication: DIABETIC WOUND
     Dosage: 3 GRAM, QD
     Route: 048
     Dates: start: 20201215, end: 20201216
  2. CLINDAMYCINE MYLAN [Suspect]
     Active Substance: CLINDAMYCIN
     Indication: DIABETIC WOUND
     Dosage: 2400 MILLIGRAM, QD
     Route: 048
     Dates: start: 20201206, end: 20201215
  3. CEFTRIAXONE MYLAN [Suspect]
     Active Substance: CEFTRIAXONE SODIUM
     Indication: DIABETIC WOUND
     Dosage: 2 GRAM, QD
     Route: 042
     Dates: start: 20201206, end: 20201214

REACTIONS (2)
  - Purpura [Recovered/Resolved]
  - Cutaneous vasculitis [Recovered/Resolved]

NARRATIVE: CASE EVENT DATE: 20201216
